FAERS Safety Report 8903610 (Version 1)
Quarter: 2012Q4

REPORT INFORMATION
  Report Type: 
  Country: SE (occurrence: SE)
  Receive Date: 20121112
  Receipt Date: 20121112
  Transmission Date: 20130627
  Serious: Yes (Hospitalization)
  Sender: FDA-Public Use
  Company Number: SE-PFIZER INC-2012278042

PATIENT
  Age: 59 Year
  Sex: Female
  Weight: 64.3 kg

DRUGS (10)
  1. GENOTROPIN [Suspect]
     Dosage: 0.4 mg, 1x/day, 7 injections/week.
     Route: 058
     Dates: start: 20040505
  2. CORTISONE ACETATE [Concomitant]
     Indication: ACTH DECREASED
     Dosage: UNK
     Dates: start: 19821101
  3. FOLLISTREL [Concomitant]
     Indication: CONTRACEPTION
     Dosage: UNK
     Dates: start: 19881101
  4. DESMOPRESSIN [Concomitant]
     Indication: ADH DECREASED
     Dosage: UNK
     Dates: start: 19940101
  5. DIVIGEL [Concomitant]
     Indication: LUTEINISING HORMONE DEFICIENCY
     Dosage: UNK
     Dates: start: 19981229
  6. DIVIGEL [Concomitant]
     Indication: FOLLICLE-STIMULATING HORMONE DEFICIENCY
  7. DIVIGEL [Concomitant]
     Indication: OVARIAN DISORDER
  8. DIVIGEL [Concomitant]
     Indication: HYPOGONADISM
  9. FLORINEF [Concomitant]
     Indication: GLUCOCORTICOID DEFICIENCY
     Dosage: UNK
     Dates: start: 20091028
  10. LEVOTHYROXINE [Concomitant]
     Indication: HYPOTHYROIDISM
     Dosage: UNK
     Dates: start: 20091028

REACTIONS (1)
  - Gastroenteritis viral [Unknown]
